FAERS Safety Report 16154426 (Version 1)
Quarter: 2019Q2

REPORT INFORMATION
  Report Type: Report from Study
  Country: IT (occurrence: IT)
  Receive Date: 20190403
  Receipt Date: 20190403
  Transmission Date: 20190711
  Serious: Yes (Hospitalization)
  Sender: FDA-Public Use
  Company Number: IT-ACCORD-117723

PATIENT
  Age: 38 Year
  Sex: Male

DRUGS (6)
  1. AMOXICILLIN. [Suspect]
     Active Substance: AMOXICILLIN
     Route: 048
     Dates: start: 20190202, end: 20190202
  2. TACHYPIRINE [Suspect]
     Active Substance: ACETAMINOPHEN
     Route: 048
     Dates: start: 20190202, end: 20190202
  3. ATORVASTATIN/ATORVASTATIN CALCIUM [Suspect]
     Active Substance: ATORVASTATIN CALCIUM
     Route: 048
     Dates: start: 20190202, end: 20190202
  4. ESOMEPRAZOLE. [Suspect]
     Active Substance: ESOMEPRAZOLE MAGNESIUM
     Route: 048
     Dates: start: 20190202, end: 20190202
  5. CARDIOASPIRIN [Suspect]
     Active Substance: ASPIRIN
     Route: 048
     Dates: start: 20190202, end: 20190202
  6. OKI [Suspect]
     Active Substance: KETOPROFEN LYSINE
     Route: 048
     Dates: start: 20190202, end: 20190202

REACTIONS (3)
  - Drug abuse [Unknown]
  - Intentional self-injury [Unknown]
  - Agitation [Recovered/Resolved]

NARRATIVE: CASE EVENT DATE: 20190202
